FAERS Safety Report 6288992-X (Version None)
Quarter: 2009Q3

REPORT INFORMATION
  Report Type: 
  Country: None (occurrence: None)
  Receive Date: 20090729
  Receipt Date: 20090720
  Transmission Date: 20100115
  Serious: Yes (Hospitalization)
  Sender: FDA-Public Use
  Company Number: PHHY2009BR30411

PATIENT
  Age: 77 Year
  Sex: Male

DRUGS (2)
  1. EXELON [Suspect]
     Dosage: 1 CAPLSULE 12 HOURLY
     Dates: start: 20080701
  2. EXELON [Suspect]
     Dosage: 3MG

REACTIONS (4)
  - LIP DISCOLOURATION [None]
  - NAUSEA [None]
  - PALLOR [None]
  - VOMITING [None]
